FAERS Safety Report 8495876-5 (Version None)
Quarter: 2012Q3

REPORT INFORMATION
  Report Type: 
  Country: None (occurrence: None)
  Receive Date: 20120709
  Receipt Date: 20120703
  Transmission Date: 20120928
  Serious: No
  Sender: FDA-Public Use
  Company Number: US-PFIZER INC-2012160380

PATIENT
  Age: 71 Year
  Sex: Female

DRUGS (1)
  1. LYRICA [Suspect]
     Indication: PAIN
     Dosage: 75 MG, 3X/DAY
     Route: 048
     Dates: start: 20120523

REACTIONS (8)
  - WEIGHT INCREASED [None]
  - ERYTHEMA [None]
  - OEDEMA PERIPHERAL [None]
  - DRUG INEFFECTIVE [None]
  - BALANCE DISORDER [None]
  - SWELLING FACE [None]
  - HYPERTENSION [None]
  - FATIGUE [None]
